FAERS Safety Report 4617862-5 (Version None)
Quarter: 2005Q1

REPORT INFORMATION
  Report Type: 
  Country: None (occurrence: None)
  Receive Date: 20050324
  Receipt Date: 20050316
  Transmission Date: 20050727
  Serious: Yes (Other)
  Sender: FDA-Public Use
  Company Number: ZA-GLAXOSMITHKLINE-B0375746A

PATIENT
  Age: 29 Year
  Sex: Male

DRUGS (2)
  1. ZYBAN [Suspect]
     Indication: DRUG USE FOR UNKNOWN INDICATION
     Route: 065
     Dates: start: 20050222, end: 20050306
  2. FLUNITRAZEPAM [Concomitant]
     Indication: INSOMNIA
     Dosage: 1MG AT NIGHT
     Route: 048

REACTIONS (5)
  - DERMATITIS ALLERGIC [None]
  - ERYTHEMA [None]
  - RASH [None]
  - RASH PAPULAR [None]
  - SKIN DISORDER [None]
